FAERS Safety Report 20804669 (Version 2)
Quarter: 2022Q2

REPORT INFORMATION
  Report Type: Spontaneous
  Country: US (occurrence: US)
  Receive Date: 20220509
  Receipt Date: 20220511
  Transmission Date: 20220721
  Serious: Yes (Other)
  Sender: FDA-Public Use
  Company Number: US-PFIZER INC-202200655262

PATIENT
  Age: 56 Year
  Sex: Male
  Weight: 86.18 kg

DRUGS (2)
  1. ACCUPRIL [Suspect]
     Active Substance: QUINAPRIL HYDROCHLORIDE
     Indication: Hypertension
     Dosage: 40 MG, DAILY (TAKING ACCUPRIL 40 MG DAILY FOR 25 YEARS)
  2. ACCUPRIL [Suspect]
     Active Substance: QUINAPRIL HYDROCHLORIDE
     Indication: Blood cholesterol increased
     Dosage: 40 MG, 1X/DAY
     Route: 048

REACTIONS (6)
  - Prostate cancer [Unknown]
  - Colon cancer [Unknown]
  - Skin cancer [Unknown]
  - Chronic lymphocytic leukaemia [Unknown]
  - Lymphoma [Unknown]
  - Recalled product administered [Unknown]

NARRATIVE: CASE EVENT DATE: 20020101
